FAERS Safety Report 18578998 (Version 1)
Quarter: 2020Q4

REPORT INFORMATION
  Report Type: Spontaneous
  Country: US (occurrence: US)
  Receive Date: 20201202
  Receipt Date: 20201202
  Transmission Date: 20210114
  Serious: No
  Sender: FDA-Public Use
  Company Number: None

PATIENT
  Age: 70 Year
  Sex: Male

DRUGS (1)
  1. FLUOROURACIL (FLUOROURACIL 5% CREAM, TOP ) [Suspect]
     Active Substance: FLUOROURACIL
     Indication: SKIN CANCER
     Dates: start: 20171113, end: 20180104

REACTIONS (3)
  - Swelling [None]
  - Oropharyngeal pain [None]
  - Rash [None]

NARRATIVE: CASE EVENT DATE: 20180104
